FAERS Safety Report 5570776-9 (Version None)
Quarter: 2007Q4

REPORT INFORMATION
  Report Type: 
  Country: None (occurrence: None)
  Receive Date: 20071221
  Receipt Date: 20071211
  Transmission Date: 20080405
  Serious: Yes (Disabling)
  Sender: FDA-Public Use
  Company Number: CA-ELI_LILLY_AND_COMPANY-CA200704006493

PATIENT
  Sex: Female

DRUGS (9)
  1. FORTEO [Suspect]
     Indication: OSTEOPOROSIS
     Dosage: 20 UG, DAILY (1/D)
     Route: 058
     Dates: start: 20061228, end: 20070220
  2. FORTEO [Suspect]
     Dosage: 20 UG, DAILY (1/D)
     Route: 058
     Dates: start: 20070716, end: 20070723
  3. DEPO-MEDROL [Concomitant]
     Dosage: UNK, WEEKLY (1/W)
     Route: 030
  4. METHOTREXATE [Concomitant]
     Dosage: UNK, WEEKLY (1/W)
     Route: 030
  5. NAPROSYN [Concomitant]
  6. LOSEC [Concomitant]
  7. ADALAT [Concomitant]
  8. VITAMIN B-12 [Concomitant]
     Dosage: UNK, MONTHLY (1/M)
     Route: 030
  9. CALCIUM [Concomitant]

REACTIONS (5)
  - ARTHRALGIA [None]
  - BLOOD PARATHYROID HORMONE INCREASED [None]
  - OEDEMA PERIPHERAL [None]
  - SYSTEMIC LUPUS ERYTHEMATOSUS [None]
  - VITAMIN D DECREASED [None]
